FAERS Safety Report 12651159 (Version 1)
Quarter: 2016Q3

REPORT INFORMATION
  Report Type: Spontaneous
  Country: US (occurrence: US)
  Receive Date: 20160815
  Receipt Date: 20160815
  Transmission Date: 20161109
  Serious: No
  Sender: FDA-Public Use
  Company Number: US-JAZZ-2016-US-005395

PATIENT
  Sex: Female

DRUGS (25)
  1. NICORETTE [Concomitant]
     Active Substance: NICOTINE
  2. VITAMIN D2 [Concomitant]
     Active Substance: ERGOCALCIFEROL
  3. CYMBALTA [Concomitant]
     Active Substance: DULOXETINE HYDROCHLORIDE
  4. LIDODERM [Concomitant]
     Active Substance: LIDOCAINE
  5. PERCOCET [Concomitant]
     Active Substance: ACETAMINOPHEN\OXYCODONE HYDROCHLORIDE
  6. LAMICTAL [Concomitant]
     Active Substance: LAMOTRIGINE
  7. PROMETRIUM [Concomitant]
     Active Substance: PROGESTERONE
  8. VOLTAREN [Concomitant]
     Active Substance: DICLOFENAC SODIUM
  9. RITALIN [Concomitant]
     Active Substance: METHYLPHENIDATE HYDROCHLORIDE
  10. ALBUTEROL SULFATE. [Concomitant]
     Active Substance: ALBUTEROL SULFATE
  11. NABUMETONE. [Concomitant]
     Active Substance: NABUMETONE
  12. NICORETTE [Concomitant]
     Active Substance: NICOTINE
  13. CLIMARA [Concomitant]
     Active Substance: ESTRADIOL
  14. WELLBUTRIN [Concomitant]
     Active Substance: BUPROPION HYDROCHLORIDE
  15. XYREM [Suspect]
     Active Substance: SODIUM OXYBATE
     Indication: FIBROMYALGIA
     Dosage: 4.5 G, BID
     Route: 048
     Dates: start: 200812, end: 2010
  16. XYREM [Suspect]
     Active Substance: SODIUM OXYBATE
     Dosage: 3 G, BID
     Route: 048
     Dates: start: 201006
  17. ABILIFY [Suspect]
     Active Substance: ARIPIPRAZOLE
     Indication: PRODUCT USED FOR UNKNOWN INDICATION
     Dosage: UNK
  18. FLONASE [Concomitant]
     Active Substance: FLUTICASONE PROPIONATE
  19. PREDNISONE. [Concomitant]
     Active Substance: PREDNISONE
  20. QVAR [Concomitant]
     Active Substance: BECLOMETHASONE DIPROPIONATE
  21. CALCIUM +D [Concomitant]
     Active Substance: CALCIUM\VITAMIN D
  22. HYDROCORTISONE. [Concomitant]
     Active Substance: HYDROCORTISONE
  23. GABAPENIN [Concomitant]
  24. EPIPEN [Concomitant]
     Active Substance: EPINEPHRINE
  25. MULTIVITAMINS [Concomitant]
     Active Substance: VITAMINS

REACTIONS (2)
  - Weight increased [Unknown]
  - Food craving [Unknown]
